FAERS Safety Report 8517323-7 (Version None)
Quarter: 2012Q3

REPORT INFORMATION
  Report Type: 
  Country: None (occurrence: None)
  Receive Date: 20120718
  Receipt Date: 20120712
  Transmission Date: 20120928
  Serious: Yes (Hospitalization, Other)
  Sender: FDA-Public Use
  Company Number: US-PFIZER INC-2012168574

PATIENT
  Sex: Female
  Weight: 46 kg

DRUGS (1)
  1. TYGACIL [Suspect]
     Indication: LOCALISED INFECTION
     Dosage: 50 MG, 1X/DAY
     Route: 042
     Dates: start: 20120101

REACTIONS (2)
  - CONFUSIONAL STATE [None]
  - COMA [None]
